FAERS Safety Report 4496107-3 (Version None)
Quarter: 2004Q4

REPORT INFORMATION
  Report Type: 
  Country: None (occurrence: None)
  Receive Date: 20041108
  Receipt Date: 20041103
  Transmission Date: 20050328
  Serious: Yes (Hospitalization)
  Sender: FDA-Public Use
  Company Number: DK-MERCK-0411DNK00008

PATIENT
  Age: 49 Year
  Sex: Female

DRUGS (10)
  1. VIOXX [Suspect]
     Indication: PAIN IN EXTREMITY
     Route: 048
     Dates: start: 20000713, end: 20040920
  2. VIOXX [Suspect]
     Route: 048
     Dates: start: 20000713, end: 20040920
  3. LANSOPRAZOLE [Concomitant]
     Route: 048
  4. BENDROFLUMETHIAZIDE AND POTASSIUM CHLORIDE [Concomitant]
     Route: 048
  5. PROCYCLIDINE HYDROCHLORIDE [Concomitant]
     Route: 048
  6. ESTRADIOL BENZOATE [Concomitant]
     Route: 048
     Dates: start: 20020401, end: 20040901
  7. TRAMADOL HYDROCHLORIDE [Concomitant]
     Route: 048
  8. ZOPICLONE [Concomitant]
     Route: 048
  9. OXAZEPAM [Concomitant]
     Route: 048
  10. ZUCLOPENTHIXOL HYDROCHLORIDE [Concomitant]
     Route: 048

REACTIONS (2)
  - CEREBROVASCULAR ACCIDENT [None]
  - HEMIPARESIS [None]
